FAERS Safety Report 6678763-4 (Version None)
Quarter: 2010Q2

REPORT INFORMATION
  Report Type: 
  Country: None (occurrence: None)
  Receive Date: 20100412
  Receipt Date: 20100412
  Transmission Date: 20101027
  Serious: Yes (Life-Threatening, Hospitalization, Disabling)
  Sender: FDA-Public Use
  Company Number: None

PATIENT
  Age: 75 Year
  Sex: 0
  Weight: 120.2032 kg

DRUGS (3)
  1. DILAUDID [Suspect]
     Indication: ABDOMINAL PAIN
     Dosage: 0.25 MG Q 10 MINUTES IV
     Route: 042
     Dates: start: 20100226, end: 20100228
  2. DILAUDID [Suspect]
     Indication: SMALL INTESTINAL RESECTION
     Dosage: 0.25 MG Q 10 MINUTES IV
     Route: 042
     Dates: start: 20100226, end: 20100228
  3. DILAUDID PCA PUMP [Concomitant]

REACTIONS (5)
  - BLOOD PH DECREASED [None]
  - DEPRESSED LEVEL OF CONSCIOUSNESS [None]
  - DYSPNOEA [None]
  - PCO2 INCREASED [None]
  - PO2 DECREASED [None]
